FAERS Safety Report 8846799 (Version 1)
Quarter: 2012Q4

REPORT INFORMATION
  Report Type: 
  Country: US (occurrence: US)
  Receive Date: 20121018
  Receipt Date: 20121018
  Transmission Date: 20130627
  Serious: No
  Sender: FDA-Public Use
  Company Number: US-BAYER-2012-108883

PATIENT
  Age: 93 Year
  Sex: Female
  Weight: 59.86 kg

DRUGS (9)
  1. ACETYLSALICYLIC ACID [Concomitant]
     Indication: ISCHAEMIC HEART DISEASE PROPHYLAXIS
     Dosage: 81 mg, UNK
  2. ALEVE CAPLET/TABLET,MIDOL EXTENDED RELIEF CAPLET [Suspect]
     Dosage: 1 DF, BID daily
     Route: 048
     Dates: start: 201010
  3. LOSARTAN [Concomitant]
  4. NEURONTIN [Concomitant]
  5. CENTUM SILVER MULTI VITAMIN [Concomitant]
  6. LEVOTHYROXINE [Concomitant]
  7. OCUVITE [Concomitant]
  8. PRILOSEC [Concomitant]
  9. VERAPAMIL [Concomitant]

REACTIONS (1)
  - No adverse event [None]
